FAERS Safety Report 10596254 (Version 2)
Quarter: 2014Q4

REPORT INFORMATION
  Report Type: Spontaneous
  Country: US (occurrence: US)
  Receive Date: 20141120
  Receipt Date: 20141211
  Transmission Date: 20150529
  Serious: Yes (Other)
  Sender: FDA-Public Use
  Company Number: US-PERRIGO-14US011168

PATIENT
  Age: 48 Year
  Sex: Male
  Weight: 88.44 kg

DRUGS (3)
  1. CALCIUM CARBONATE BERRY CHEWABLE 750 MG 489 [Suspect]
     Active Substance: CALCIUM CARBONATE
     Indication: DYSPEPSIA
     Dosage: 2 CHEWABLE TABLETS, SINGLE
     Route: 048
     Dates: start: 20141109, end: 20141109
  2. CALCIUM CARBONATE BERRY CHEWABLE 750 MG 489 [Suspect]
     Active Substance: CALCIUM CARBONATE
     Dosage: 2 CHEWABLE TABLETS, PUT IN MOUTH THEN SPIT BACK OUT
     Route: 048
     Dates: start: 20141109, end: 20141109
  3. BREO ELLIPTA [Concomitant]
     Active Substance: FLUTICASONE FUROATE\VILANTEROL TRIFENATATE
     Indication: CHRONIC OBSTRUCTIVE PULMONARY DISEASE
     Dosage: UNK, UNK
     Route: 065

REACTIONS (11)
  - Peripheral swelling [Recovered/Resolved]
  - Rash [Recovered/Resolved]
  - Eye pain [Recovering/Resolving]
  - Eye swelling [Recovered/Resolved]
  - Dyspnoea [Recovered/Resolved]
  - Gastrointestinal sounds abnormal [Recovered/Resolved]
  - Respiratory rate increased [Recovered/Resolved]
  - Hypopnoea [Recovered/Resolved]
  - Hypersensitivity [Recovering/Resolving]
  - Abdominal pain [Recovered/Resolved]
  - Pharyngeal oedema [Recovered/Resolved]

NARRATIVE: CASE EVENT DATE: 20141109
